FAERS Safety Report 7531095-4 (Version None)
Quarter: 2011Q2

REPORT INFORMATION
  Report Type: 
  Country: None (occurrence: None)
  Receive Date: 20110526
  Receipt Date: 20110523
  Transmission Date: 20111010
  Serious: Yes (Hospitalization, Other)
  Sender: FDA-Public Use
  Company Number: 2011SP015966

PATIENT
  Age: 40 Year
  Sex: Female
  Weight: 72 kg

DRUGS (3)
  1. TRIPHASIL-21 [Concomitant]
  2. LUMIGAN [Concomitant]
  3. IMPLANON [Suspect]
     Indication: CONTRACEPTION
     Dosage: 1 DF; ; SC
     Route: 058
     Dates: start: 20100329, end: 20110225

REACTIONS (1)
  - BREAST CANCER [None]
